FAERS Safety Report 19736611 (Version 6)
Quarter: 2022Q4

REPORT INFORMATION
  Report Type: Report from Study
  Country: US (occurrence: US)
  Receive Date: 20210823
  Receipt Date: 20221125
  Transmission Date: 20230113
  Serious: Yes (Other)
  Sender: FDA-Public Use
  Company Number: US-NOVARTISPH-NVSC2021US160457

PATIENT
  Sex: Female
  Weight: 96.599 kg

DRUGS (7)
  1. TREPROSTINIL [Suspect]
     Active Substance: TREPROSTINIL
     Indication: Pulmonary arterial hypertension
     Dosage: 6 NG/KG/MIN, CONT (1MG/ML)
     Route: 058
     Dates: start: 20210615
  2. TREPROSTINIL [Suspect]
     Active Substance: TREPROSTINIL
     Dosage: 6 NG/KG/MIN, CONT (1MG/ML)
     Route: 058
  3. TREPROSTINIL [Suspect]
     Active Substance: TREPROSTINIL
     Dosage: 9 NG/KG/MIN, CONT (2.5 MG/ML)
     Route: 058
  4. TREPROSTINIL [Suspect]
     Active Substance: TREPROSTINIL
     Dosage: 30 NG/KG/MIN, CONT (5 MG/ML)
     Route: 058
     Dates: start: 20210615
  5. TREPROSTINIL [Suspect]
     Active Substance: TREPROSTINIL
     Dosage: 35 NG/KG/MIN, CONT (10 MG/ML)
     Route: 058
  6. TADALAFIL [Concomitant]
     Active Substance: TADALAFIL
     Indication: Product used for unknown indication
     Dosage: UNK
     Route: 065
  7. LETAIRIS [Concomitant]
     Active Substance: AMBRISENTAN
     Indication: Product used for unknown indication
     Dosage: UNK
     Route: 065

REACTIONS (12)
  - Thrombosis [Unknown]
  - Bronchitis [Unknown]
  - Fluid retention [Unknown]
  - Heart rate increased [Unknown]
  - Dyspnoea [Unknown]
  - Device infusion issue [Unknown]
  - Infusion site reaction [Unknown]
  - Infusion site haemorrhage [Unknown]
  - Infusion site swelling [Unknown]
  - Infusion site erythema [Unknown]
  - Infusion site pain [Unknown]
  - Infusion site infection [Unknown]
